FAERS Safety Report 6156954-9 (Version None)
Quarter: 2009Q2

REPORT INFORMATION
  Report Type: 
  Country: None (occurrence: None)
  Receive Date: 20090416
  Receipt Date: 20090407
  Transmission Date: 20091009
  Serious: Yes (Hospitalization)
  Sender: FDA-Public Use
  Company Number: B0568914A

PATIENT
  Sex: Male
  Weight: 75 kg

DRUGS (4)
  1. ARIXTRA [Suspect]
     Indication: THROMBOSIS PROPHYLAXIS
     Dosage: 2.5MG PER DAY
     Route: 058
     Dates: start: 20081001, end: 20090308
  2. ZOXAN [Concomitant]
     Indication: PROSTATIC ADENOMA
     Route: 065
  3. NOROXIN [Concomitant]
     Indication: URINARY TRACT INFECTION
     Dosage: 2TAB WEEKLY
     Route: 048
  4. AMARYL [Concomitant]
     Route: 065

REACTIONS (9)
  - ACTIVATED PARTIAL THROMBOPLASTIN TIME PROLONGED [None]
  - ANAEMIA [None]
  - BLOOD CREATINE PHOSPHOKINASE INCREASED [None]
  - BLOOD GLUCOSE DECREASED [None]
  - HAEMATOMA [None]
  - INCORRECT DRUG ADMINISTRATION DURATION [None]
  - OFF LABEL USE [None]
  - PROTHROMBIN LEVEL DECREASED [None]
  - RENAL IMPAIRMENT [None]
